FAERS Safety Report 8430786-0 (Version None)
Quarter: 2012Q2

REPORT INFORMATION
  Report Type: 
  Country: None (occurrence: None)
  Receive Date: 20120612
  Receipt Date: 20120601
  Transmission Date: 20120825
  Serious: Yes (Hospitalization)
  Sender: FDA-Public Use
  Company Number: US-RB-041034-12

PATIENT
  Age: 53 Year
  Sex: Male

DRUGS (3)
  1. KLONOPIN [Concomitant]
     Indication: ANXIETY
     Dosage: DOSING DETAILS UNKNOWN
     Route: 065
  2. SUBOXONE [Suspect]
     Indication: DRUG DEPENDENCE
     Dosage: 16 MG
     Route: 060
     Dates: start: 20070101, end: 20120520
  3. BUPRENEX [Suspect]
     Indication: DRUG DEPENDENCE
     Dosage: 4 TIMES PER DAY
     Route: 058
     Dates: start: 20120521

REACTIONS (3)
  - PNEUMONIA [None]
  - DRUG WITHDRAWAL SYNDROME [None]
  - OFF LABEL USE [None]
